FAERS Safety Report 13597025 (Version 1)
Quarter: 2017Q2

REPORT INFORMATION
  Report Type: Spontaneous
  Country: US (occurrence: US)
  Receive Date: 20170531
  Receipt Date: 20170531
  Transmission Date: 20170830
  Serious: No
  Sender: FDA-Public Use
  Company Number: US-BAYER-2017-094403

PATIENT
  Age: 57 Year
  Sex: Female
  Weight: 72.97 kg

DRUGS (3)
  1. SYNTHROID [Concomitant]
     Active Substance: LEVOTHYROXINE SODIUM
     Dosage: UNK
  2. CLARITIN [Suspect]
     Active Substance: LORATADINE
     Indication: PRURITUS
     Dosage: 2 TABLETS DAILY
     Route: 048
     Dates: start: 20170517
  3. CLARITIN [Suspect]
     Active Substance: LORATADINE
     Indication: LIP SWELLING

REACTIONS (2)
  - Circumstance or information capable of leading to medication error [Unknown]
  - Inappropriate prescribing [Unknown]

NARRATIVE: CASE EVENT DATE: 201705
